FAERS Safety Report 13695153 (Version 2)
Quarter: 2017Q3

REPORT INFORMATION
  Report Type: Spontaneous
  Country: JP (occurrence: JP)
  Receive Date: 20170627
  Receipt Date: 20170712
  Transmission Date: 20171127
  Serious: Yes (Hospitalization)
  Sender: FDA-Public Use
  Company Number: US-ASTRAZENECA-2017SE66206

PATIENT
  Age: 38 Week
  Weight: 2 kg

DRUGS (1)
  1. SYNAGIS [Suspect]
     Active Substance: PALIVIZUMAB
     Indication: LOW BIRTH WEIGHT BABY
     Route: 030
     Dates: start: 20150908, end: 20150908

REACTIONS (4)
  - Cough [Unknown]
  - Poor feeding infant [Unknown]
  - Respiratory syncytial virus test positive [Unknown]
  - Vomiting [Unknown]

NARRATIVE: CASE EVENT DATE: 20150917
